FAERS Safety Report 14256374 (Version 1)
Quarter: 2017Q4

REPORT INFORMATION
  Report Type: Spontaneous
  Country: GB (occurrence: GB)
  Receive Date: 20171206
  Receipt Date: 20171206
  Transmission Date: 20180321
  Serious: Yes (Life-Threatening, Hospitalization)
  Sender: FDA-Public Use
  Company Number: GB-JNJFOC-20171133835

PATIENT
  Sex: Male

DRUGS (1)
  1. PARACETAMOL AND CODEINE PHOSPHATE [Suspect]
     Active Substance: ACETAMINOPHEN\CODEINE PHOSPHATE
     Indication: PRODUCT USED FOR UNKNOWN INDICATION
     Route: 048
     Dates: start: 201710, end: 2017

REACTIONS (7)
  - Chromaturia [Unknown]
  - Wrong drug administered [Unknown]
  - Internal haemorrhage [Recovering/Resolving]
  - Blood urine present [Unknown]
  - Ill-defined disorder [Recovering/Resolving]
  - Stress [Recovering/Resolving]
  - Haematuria [Unknown]

NARRATIVE: CASE EVENT DATE: 20171028
